FAERS Safety Report 9757274 (Version 2)
Quarter: 2013Q4

REPORT INFORMATION
  Report Type: Report from Study
  Country: GB (occurrence: GB)
  Receive Date: 20131213
  Receipt Date: 20131213
  Transmission Date: 20140711
  Serious: Yes (Death)
  Sender: FDA-Public Use
  Company Number: GB-ABBVIE-13P-167-1141973-00

PATIENT
  Age: 78 Year
  Sex: Female

DRUGS (11)
  1. HUMIRA [Suspect]
     Indication: RHEUMATOID ARTHRITIS
     Route: 058
     Dates: start: 20061023, end: 20080801
  2. DONEPEZIL [Concomitant]
     Indication: INFECTION
  3. THYROXINE [Concomitant]
     Indication: INFECTION
  4. BISOPROLOL [Concomitant]
     Indication: INFECTION
  5. ATORVASTATIN [Concomitant]
     Indication: INFECTION
  6. FERROUS FUMARATE [Concomitant]
     Indication: INFECTION
  7. ALENDRONIC ACID [Concomitant]
     Indication: INFECTION
  8. COLECALCIFEROL [Concomitant]
     Indication: INFECTION
  9. PREDNISOLONE [Concomitant]
     Indication: INFECTION
     Dosage: 10 TO 15MG, ONCE DAILY
  10. PARACETAMOL [Concomitant]
     Indication: INFECTION
  11. OMEPRAZOLE [Concomitant]
     Indication: INFECTION

REACTIONS (6)
  - Myelodysplastic syndrome [Fatal]
  - Sepsis [Fatal]
  - Pneumonia [Fatal]
  - Cardiac failure congestive [Fatal]
  - Polymyalgia rheumatica [Fatal]
  - Dementia [Fatal]
